FAERS Safety Report 9567649 (Version 2)
Quarter: 2013Q3

REPORT INFORMATION
  Report Type: Spontaneous
  Country: US (occurrence: US)
  Receive Date: 20130930
  Receipt Date: 20130930
  Transmission Date: 20140515
  Serious: No
  Sender: FDA-Public Use
  Company Number: US-AMGEN-USASP2012067723

PATIENT
  Age: 63 Year
  Sex: Female
  Weight: 86.62 kg

DRUGS (13)
  1. ENBREL [Suspect]
     Indication: RHEUMATOID ARTHRITIS
     Dosage: UNK
     Dates: start: 20120130, end: 20120628
  2. HUMIRA [Concomitant]
     Indication: RHEUMATOID ARTHRITIS
     Dosage: 40 MG/0.81ML, EVERY OTHER WEEK
     Route: 058
  3. BABY ASPIRIN [Concomitant]
     Dosage: UNK
  4. CALCIUM + VITAMIN D                /01483701/ [Concomitant]
     Dosage: UNK
  5. CYMBALTA [Concomitant]
     Dosage: UNK
  6. FISH OIL [Concomitant]
     Dosage: UNK
  7. FLAXSEED OIL [Concomitant]
     Dosage: UNK
  8. METOPROLOL [Concomitant]
     Dosage: UNK
  9. NEXIUM                             /01479302/ [Concomitant]
     Dosage: UNK
  10. TRAMADOL [Concomitant]
     Dosage: UNK
  11. TYLENOL EXTRA STRENGTH [Concomitant]
     Dosage: UNK
  12. VITAMIN B COMPLEX [Concomitant]
     Dosage: UNK
  13. VITAMIN E                          /00110501/ [Concomitant]
     Dosage: UNK

REACTIONS (3)
  - Arthralgia [Unknown]
  - Joint swelling [Unknown]
  - Drug ineffective [Unknown]
